FAERS Safety Report 6334253-X (Version None)
Quarter: 2009Q3

REPORT INFORMATION
  Report Type: 
  Country: None (occurrence: None)
  Receive Date: 20090829
  Receipt Date: 20090726
  Transmission Date: 20100115
  Serious: No
  Sender: FDA-Public Use
  Company Number: US-ABBOTT-09P-163-0587802-00

PATIENT
  Sex: Female
  Weight: 68.1 kg

DRUGS (2)
  1. SIMCOR [Suspect]
     Indication: BLOOD TRIGLYCERIDES INCREASED
     Dates: start: 20090725, end: 20090726
  2. LEXAPRO [Concomitant]
     Indication: IRRITABLE BOWEL SYNDROME

REACTIONS (5)
  - ERYTHEMA [None]
  - FLUSHING [None]
  - PRURITUS [None]
  - RASH [None]
  - SWELLING [None]
